FAERS Safety Report 6618900-0 (Version None)
Quarter: 2010Q1

REPORT INFORMATION
  Report Type: 
  Country: None (occurrence: None)
  Receive Date: 20100308
  Receipt Date: 20100301
  Transmission Date: 20100710
  Serious: No
  Sender: FDA-Public Use
  Company Number: US-BAXTER-2010BH001572

PATIENT
  Age: 48 Year
  Sex: Female
  Weight: 88 kg

DRUGS (6)
  1. HEPARIN SODIUM INJECTION [Suspect]
     Indication: ATRIAL FLUTTER
     Route: 058
     Dates: start: 20060804, end: 20060804
  2. HEPARIN SODIUM INJECTION [Suspect]
     Indication: ATRIAL FIBRILLATION
     Route: 058
     Dates: start: 20060804, end: 20060804
  3. HEPARIN SODIUM 5,000 UNITS IN DEXTROSE 5% [Suspect]
     Indication: ATRIAL FLUTTER
     Route: 041
     Dates: start: 20060804, end: 20060806
  4. HEPARIN SODIUM 5,000 UNITS IN DEXTROSE 5% [Suspect]
     Indication: ATRIAL FIBRILLATION
     Route: 041
     Dates: start: 20060804, end: 20060806
  5. OTC MENOPAUSE [Concomitant]
     Indication: DRUG USE FOR UNKNOWN INDICATION
     Route: 065
  6. VITAMIN C [Concomitant]
     Indication: DRUG USE FOR UNKNOWN INDICATION
     Route: 065

REACTIONS (2)
  - DRUG HYPERSENSITIVITY [None]
  - HEPARIN-INDUCED THROMBOCYTOPENIA [None]
